FAERS Safety Report 4723470-8 (Version None)
Quarter: 2005Q3

REPORT INFORMATION
  Report Type: 
  Country: None (occurrence: None)
  Receive Date: 20050725
  Receipt Date: 20050602
  Transmission Date: 20060218
  Serious: Yes (Death)
  Sender: FDA-Public Use
  Company Number: FR-GLAXOSMITHKLINE-B0384950A

PATIENT
  Age: 27 Year
  Sex: Female

DRUGS (1)
  1. ZOVIRAX [Suspect]
     Dosage: 200MG THREE TIMES PER DAY
     Route: 048

REACTIONS (1)
  - ABORTION INDUCED [None]
